FAERS Safety Report 12315550 (Version 2)
Quarter: 2016Q2

REPORT INFORMATION
  Report Type: Spontaneous
  Country: US (occurrence: US)
  Receive Date: 20160428
  Receipt Date: 20160531
  Transmission Date: 20160815
  Serious: Yes (Hospitalization, Other)
  Sender: FDA-Public Use
  Company Number: US-MDT-ADR-2016-00773

PATIENT
  Age: 12 Year
  Sex: Female

DRUGS (1)
  1. BACLOFEN. [Suspect]
     Active Substance: BACLOFEN
     Route: 037

REACTIONS (5)
  - Malaise [Unknown]
  - Abasia [Unknown]
  - Wound dehiscence [Unknown]
  - Incision site complication [Unknown]
  - Medical device site discharge [Unknown]
